FAERS Safety Report 7957028-4 (Version None)
Quarter: 2011Q4

REPORT INFORMATION
  Report Type: 
  Country: None (occurrence: None)
  Receive Date: 20111205
  Receipt Date: 20111205
  Transmission Date: 20120403
  Serious: Yes (Life-Threatening, Hospitalization, Other)
  Sender: FDA-Public Use
  Company Number: None

PATIENT
  Age: 51 Year
  Sex: Female
  Weight: 72.574 kg

DRUGS (1)
  1. CLINDAMYCIN [Suspect]
     Indication: TOOTH INFECTION
     Dosage: 1 CAPSULE
     Route: 048
     Dates: start: 20111014, end: 20111024

REACTIONS (7)
  - VOMITING [None]
  - PYREXIA [None]
  - DIARRHOEA [None]
  - MALAISE [None]
  - CLOSTRIDIUM COLITIS [None]
  - URINARY TRACT INFECTION [None]
  - IMPAIRED WORK ABILITY [None]
